FAERS Safety Report 10370299 (Version 1)
Quarter: 2014Q3

REPORT INFORMATION
  Report Type: Spontaneous
  Country: US (occurrence: None)
  Receive Date: 20140805
  Receipt Date: 20140805
  Transmission Date: 20150326
  Serious: Yes (Other)
  Sender: FDA-Public Use
  Company Number: SYM-2014-23753

PATIENT
  Age: 56 Year
  Sex: Male

DRUGS (2)
  1. XENAZINE [Suspect]
     Active Substance: TETRABENAZINE
     Indication: HUNTINGTON^S DISEASE
     Route: 048
     Dates: start: 2014
  2. HALOPERIDOL (HALOPERIDOL) (HALOPERIDOL) [Concomitant]
     Active Substance: HALOPERIDOL

REACTIONS (2)
  - Psychotic disorder [None]
  - Anxiety [None]

NARRATIVE: CASE EVENT DATE: 2014
